FAERS Safety Report 7888118-2 (Version None)
Quarter: 2011Q4

REPORT INFORMATION
  Report Type: 
  Country: None (occurrence: None)
  Receive Date: 20111101
  Receipt Date: 20111021
  Transmission Date: 20120403
  Serious: Yes (Other)
  Sender: FDA-Public Use
  Company Number: AUR-APL-2011-05556

PATIENT
  Age: 57 Year
  Sex: Female

DRUGS (10)
  1. AMLODIPINE [Suspect]
     Indication: HYPERTENSION
     Dosage: 5 MG (5 MG, 1 IN 1 D), ORAL
     Route: 048
     Dates: start: 20111010, end: 20111010
  2. GLICLAZIDE (GLICLAZIDE) [Concomitant]
  3. INDAPAMIDE (INDAPAMINE) [Concomitant]
  4. SYMBICORT [Concomitant]
  5. OMEPRAZOLE [Concomitant]
  6. EZETIMIBE [Concomitant]
  7. METFORMIN HCL [Concomitant]
  8. MOXONIDINE (MOXONIDINE) [Concomitant]
  9. IRBESARTAN (IRBESARTAN) [Concomitant]
  10. SITAGLIPTION (SITAGLIPTION) [Concomitant]

REACTIONS (5)
  - SWOLLEN TONGUE [None]
  - PARAESTHESIA ORAL [None]
  - PARAESTHESIA [None]
  - PRURITUS [None]
  - SWELLING FACE [None]
